FAERS Safety Report 24577704 (Version 1)
Quarter: 2024Q4

REPORT INFORMATION
  Report Type: Spontaneous
  Country: US (occurrence: None)
  Receive Date: 20241104
  Receipt Date: 20241104
  Transmission Date: 20250114
  Serious: Yes (Life-Threatening, Hospitalization, Disabling, Other)
  Sender: Public
  Company Number: None

PATIENT
  Age: 47 Year
  Sex: Male
  Weight: 73.7 kg

DRUGS (5)
  1. APIS MELLIFICA [Suspect]
     Active Substance: APIS MELLIFERA
     Indication: Chronic kidney disease
     Dates: start: 20241006
  2. AMLODIPINE [Concomitant]
     Active Substance: AMLODIPINE BESYLATE
  3. LOSARTAN [Concomitant]
     Active Substance: LOSARTAN
  4. HemeVite Plus [Concomitant]
     Dates: end: 20241027
  5. Fiber Capsules [Concomitant]
     Dates: end: 20241027

REACTIONS (5)
  - Abdominal distension [None]
  - Jaundice [None]
  - Hepatic failure [None]
  - Biopsy liver abnormal [None]
  - Hepatitis [None]

NARRATIVE: CASE EVENT DATE: 20241024
